FAERS Safety Report 9503760 (Version 1)
Quarter: 2013Q1

REPORT INFORMATION
  Report Type: Spontaneous
  Country: US (occurrence: None)
  Receive Date: 20130107
  Receipt Date: 20130107
  Transmission Date: 20140127
  Serious: No
  Sender: FDA-Public Use
  Company Number: PHEH2012US019973

PATIENT
  Age: 38 Year
  Sex: Female
  Weight: 95.2 kg

DRUGS (5)
  1. GILENYA [Suspect]
     Indication: MULTIPLE SCLEROSIS
     Dates: start: 20120924
  2. NEURONTIN (GABAPENTIN) [Concomitant]
  3. CLONAZEPAM (CLONAZEPAM) [Concomitant]
  4. EFFEXOR (VENLAFAXINE HYDROCHLORIDE) [Concomitant]
  5. CELEXA (CITALOPRAM HYDROBROMIDE) [Concomitant]

REACTIONS (3)
  - Dyspnoea [None]
  - Fatigue [None]
  - Obstructive airways disorder [None]
